FAERS Safety Report 9255556 (Version 1)
Quarter: 2013Q2

REPORT INFORMATION
  Report Type: Spontaneous
  Country: US (occurrence: US)
  Receive Date: 20130425
  Receipt Date: 20130425
  Transmission Date: 20140414
  Serious: No
  Sender: FDA-Public Use
  Company Number: US-009507513-1304USA013830

PATIENT
  Sex: Female

DRUGS (3)
  1. COSOPT PF [Suspect]
     Indication: INTRAOCULAR PRESSURE TEST
     Dosage: 1 DROP TWICE A DAY INTO AFFECTED EYE(S)
     Route: 047
     Dates: start: 2013
  2. ZIOPTAN [Suspect]
     Dosage: 1 DROP AT BEDTIME INTO THE AFFECTED EYE(S)
     Route: 047
     Dates: start: 2013
  3. ALPHAGAN [Concomitant]

REACTIONS (1)
  - Intraocular pressure fluctuation [Unknown]
